FAERS Safety Report 18193668 (Version 1)
Quarter: 2020Q3

REPORT INFORMATION
  Report Type: Spontaneous
  Country: US (occurrence: US)
  Receive Date: 20200825
  Receipt Date: 20200825
  Transmission Date: 20201103
  Serious: Yes (Death, Other)
  Sender: FDA-Public Use
  Company Number: US-PURDUE-USA-2020-0162588

PATIENT
  Sex: Male

DRUGS (1)
  1. OXYCONTIN [Suspect]
     Active Substance: OXYCODONE HYDROCHLORIDE
     Indication: INJURY
     Dosage: 60 MG
     Route: 048
     Dates: start: 2004, end: 2014

REACTIONS (3)
  - Dependence [Unknown]
  - Liver injury [Unknown]
  - Death [Fatal]

NARRATIVE: CASE EVENT DATE: 2012
